FAERS Safety Report 5293448-7 (Version None)
Quarter: 2007Q2

REPORT INFORMATION
  Report Type: 
  Country: None (occurrence: None)
  Receive Date: 20070411
  Receipt Date: 20070409
  Transmission Date: 20071010
  Serious: Yes (Other)
  Sender: FDA-Public Use
  Company Number: JP-BRISTOL-MYERS SQUIBB COMPANY-13742531

PATIENT
  Age: 68 Year
  Sex: Female

DRUGS (3)
  1. CARBOPLATIN [Suspect]
     Indication: LUNG CANCER METASTATIC
     Dates: start: 20020619
  2. PACLITAXEL [Suspect]
     Indication: LUNG CANCER METASTATIC
     Dates: start: 20020620
  3. RADIATION THERAPY [Suspect]
     Indication: LUNG CANCER METASTATIC
     Dates: start: 20020619

REACTIONS (2)
  - DIARRHOEA HAEMORRHAGIC [None]
  - NEUTROPENIC COLITIS [None]
